FAERS Safety Report 24943415 (Version 1)
Quarter: 2025Q1

REPORT INFORMATION
  Report Type: Spontaneous
  Country: US (occurrence: None)
  Receive Date: 20250207
  Receipt Date: 20250207
  Transmission Date: 20250409
  Serious: No
  Sender: FDA-CTU
  Company Number: None

PATIENT

DRUGS (1)
  1. METHYLPHENIDATE [Suspect]
     Active Substance: METHYLPHENIDATE

REACTIONS (4)
  - Sleep disorder [None]
  - Condition aggravated [None]
  - Treatment failure [None]
  - Drug ineffective [None]

NARRATIVE: CASE EVENT DATE: 20250206
